FAERS Safety Report 5300514-6 (Version None)
Quarter: 2007Q2

REPORT INFORMATION
  Report Type: 
  Country: None (occurrence: None)
  Receive Date: 20070418
  Receipt Date: 20070416
  Transmission Date: 20071010
  Serious: Yes (Life-Threatening, Other)
  Sender: FDA-Public Use
  Company Number: FR-BRISTOL-MYERS SQUIBB COMPANY-13750427

PATIENT
  Age: 66 Year
  Sex: Female

DRUGS (4)
  1. TAXOL [Suspect]
     Indication: OVARIAN EPITHELIAL CANCER
     Route: 042
     Dates: start: 20030901, end: 20040301
  2. TAXOL [Suspect]
     Route: 042
     Dates: start: 20041015, end: 20051026
  3. CARBOPLATIN [Suspect]
     Indication: OVARIAN EPITHELIAL CANCER
     Route: 042
     Dates: start: 20030901, end: 20040301
  4. CARBOPLATIN [Suspect]
     Route: 042
     Dates: start: 20041015, end: 20051026

REACTIONS (1)
  - MYELOID LEUKAEMIA [None]
